FAERS Safety Report 19494432 (Version 2)
Quarter: 2021Q3

REPORT INFORMATION
  Report Type: Spontaneous
  Country: GB (occurrence: GB)
  Receive Date: 20210705
  Receipt Date: 20210714
  Transmission Date: 20211014
  Serious: Yes (Other)
  Sender: FDA-Public Use
  Company Number: GB-SA-2021SA208446

PATIENT
  Age: 69 Year
  Sex: Female

DRUGS (10)
  1. SULPHASALAZINE [Suspect]
     Active Substance: SULFASALAZINE
     Dosage: UNK
  2. TOFACITINIB [Suspect]
     Active Substance: TOFACITINIB
     Indication: RHEUMATOID ARTHRITIS
     Dosage: ESCALATED
     Dates: start: 201908
  3. RIFAMPICIN [Concomitant]
     Active Substance: RIFAMPIN
     Indication: PROPHYLAXIS
  4. RIFAMPICIN [Concomitant]
     Active Substance: RIFAMPIN
     Indication: LATENT TUBERCULOSIS
     Dosage: UNK
  5. METHOTREXATE. [Suspect]
     Active Substance: METHOTREXATE
     Indication: RHEUMATOID ARTHRITIS
  6. LEFLUNOMIDE. [Suspect]
     Active Substance: LEFLUNOMIDE
     Dosage: UNK
  7. ETANERCEPT [Suspect]
     Active Substance: ETANERCEPT
     Dosage: UNK
  8. ISONIAZID. [Concomitant]
     Active Substance: ISONIAZID
     Indication: PROPHYLAXIS
     Dosage: UNK
  9. ISONIAZID. [Concomitant]
     Active Substance: ISONIAZID
     Indication: LATENT TUBERCULOSIS
  10. PREDNISOLONE. [Suspect]
     Active Substance: PREDNISOLONE
     Indication: RETINAL VASCULITIS
     Dosage: 60 MG, QD
     Route: 048

REACTIONS (6)
  - Cytomegalovirus chorioretinitis [Unknown]
  - Drug ineffective [Unknown]
  - Retinal ischaemia [Unknown]
  - Drug intolerance [Unknown]
  - Visual impairment [Unknown]
  - Retinal vasculitis [Unknown]
